FAERS Safety Report 6570188-5 (Version None)
Quarter: 2010Q1

REPORT INFORMATION
  Report Type: 
  Country: None (occurrence: None)
  Receive Date: 20100204
  Receipt Date: 20100127
  Transmission Date: 20100710
  Serious: Yes (Other)
  Sender: FDA-Public Use
  Company Number: IE-ASTRAZENECA-2010SE03711

PATIENT
  Sex: Male

DRUGS (4)
  1. CRESTOR [Suspect]
     Route: 048
  2. DIAMICRON [Concomitant]
     Route: 048
  3. NU-SEALS [Concomitant]
     Route: 048
  4. TRITACE [Concomitant]
     Route: 065

REACTIONS (1)
  - ERECTILE DYSFUNCTION [None]
